FAERS Safety Report 12689888 (Version 2)
Quarter: 2016Q3

REPORT INFORMATION
  Report Type: Report from Study
  Country: FR (occurrence: FR)
  Receive Date: 20160826
  Receipt Date: 20160907
  Transmission Date: 20161109
  Serious: Yes (Hospitalization)
  Sender: FDA-Public Use
  Company Number: FR-PFIZER INC-2016391861

PATIENT
  Age: 69 Year
  Sex: Male
  Weight: 64 kg

DRUGS (5)
  1. SUTENT [Suspect]
     Active Substance: SUNITINIB MALATE
     Indication: METASTATIC RENAL CELL CARCINOMA
     Dosage: 50 MG, DAILY ON 25 WEEKS OFF REGIMEN
     Route: 048
     Dates: start: 20130912
  2. ORACILLINE /00001801/ [Concomitant]
     Active Substance: PENICILLIN V
     Indication: PROPHYLAXIS
     Dosage: 10 IU, DAILY
     Route: 048
  3. RENITEC /00574902/ [Concomitant]
     Active Substance: ENALAPRIL MALEATE
     Indication: HYPERTENSION
     Dosage: 20 MG, DAILY
     Route: 048
     Dates: start: 199301
  4. ESOMEPRAZOLE [Concomitant]
     Active Substance: ESOMEPRAZOLE
     Indication: ABDOMINAL PAIN UPPER
     Dosage: 20 MG, DAILY
     Route: 048
  5. ICAZ [Concomitant]
     Active Substance: ISRADIPINE
     Indication: HYPERTENSION
     Dosage: 2.5 MG, DAILY
     Route: 048
     Dates: start: 20150219

REACTIONS (1)
  - Atrial fibrillation [Recovered/Resolved]

NARRATIVE: CASE EVENT DATE: 20160813
